FAERS Safety Report 7112207-3 (Version None)
Quarter: 2010Q4

REPORT INFORMATION
  Report Type: 
  Country: None (occurrence: None)
  Receive Date: 20101119
  Receipt Date: 20100224
  Transmission Date: 20110411
  Serious: No
  Sender: FDA-Public Use
  Company Number: A0848558A

PATIENT
  Age: 87 Year
  Sex: Male

DRUGS (1)
  1. AVODART [Suspect]

REACTIONS (1)
  - DRUG INEFFECTIVE [None]
